FAERS Safety Report 6954718-7 (Version None)
Quarter: 2010Q3

REPORT INFORMATION
  Report Type: 
  Country: None (occurrence: None)
  Receive Date: 20100829
  Receipt Date: 20080428
  Transmission Date: 20110219
  Serious: No
  Sender: FDA-Public Use
  Company Number: US-ALLERGAN-0804694US

PATIENT
  Sex: Female

DRUGS (1)
  1. FML [Suspect]
     Indication: INFLAMMATION
     Dosage: UNK, QOD
     Route: 047
     Dates: start: 20080405

REACTIONS (1)
  - CONJUNCTIVAL HAEMORRHAGE [None]
